FAERS Safety Report 8894281 (Version 1)
Quarter: 2012Q4

REPORT INFORMATION
  Report Type: 
  Country: US (occurrence: US)
  Receive Date: 20121107
  Receipt Date: 20121107
  Transmission Date: 20130627
  Serious: No
  Sender: FDA-Public Use
  Company Number: US-AMGEN-USASP2011048960

PATIENT
  Age: 59 Year
  Sex: Male
  Weight: 83.9 kg

DRUGS (8)
  1. ENBREL [Suspect]
     Indication: PRODUCT USED FOR UNKNOWN INDICATION
     Dosage: 50 mg, qwk
     Route: 058
  2. GEMFIBROZIL [Concomitant]
     Dosage: 600 mg, UNK
     Route: 048
  3. LISINOPRIL [Concomitant]
     Dosage: 2.5 mg, UNK
     Route: 048
  4. METOPROLOL [Concomitant]
     Dosage: 25 mg, UNK
     Route: 048
  5. PRILOSEC                           /00661201/ [Concomitant]
     Dosage: 10 mg, UNK
     Route: 048
  6. AMITRIPTYLIN [Concomitant]
     Dosage: 10 mg, UNK
     Route: 048
  7. CARISOPRODOL [Concomitant]
     Dosage: 250 mg, UNK
     Route: 048
  8. HYDROCODONE [Concomitant]
     Dosage: UNK

REACTIONS (3)
  - Hypoaesthesia [Unknown]
  - Facial pain [Unknown]
  - Paraesthesia [Unknown]
